FAERS Safety Report 17018645 (Version 1)
Quarter: 2019Q4

REPORT INFORMATION
  Report Type: Spontaneous
  Country: AU (occurrence: AU)
  Receive Date: 20191111
  Receipt Date: 20191111
  Transmission Date: 20200122
  Serious: Yes (Hospitalization)
  Sender: FDA-Public Use
  Company Number: NVSC2019AU030343

PATIENT
  Age: 35 Year
  Sex: Female

DRUGS (1)
  1. LAMOTRIGINE. [Suspect]
     Active Substance: LAMOTRIGINE
     Indication: DEPRESSION
     Dosage: UNK
     Route: 065

REACTIONS (10)
  - Product use in unapproved indication [Unknown]
  - Headache [Recovered/Resolved with Sequelae]
  - Vaginal infection [Recovered/Resolved with Sequelae]
  - Malaise [Recovered/Resolved with Sequelae]
  - Rash [Recovered/Resolved with Sequelae]
  - Eosinophilia [Recovered/Resolved with Sequelae]
  - Dysuria [Recovered/Resolved with Sequelae]
  - Toxic epidermal necrolysis [Recovered/Resolved with Sequelae]
  - Pharyngitis [Recovered/Resolved with Sequelae]
  - Liver function test abnormal [Recovered/Resolved with Sequelae]
